FAERS Safety Report 5390389-1 (Version None)
Quarter: 2007Q3

REPORT INFORMATION
  Report Type: 
  Country: None (occurrence: None)
  Receive Date: 20070718
  Receipt Date: 20070706
  Transmission Date: 20080115
  Serious: Yes (Other)
  Sender: FDA-Public Use
  Company Number: AU-PFIZER INC-2007055791

PATIENT
  Age: 61 Year
  Sex: Male

DRUGS (7)
  1. ZOLOFT [Suspect]
     Indication: MAJOR DEPRESSION
     Route: 048
  2. ZOLOFT [Suspect]
     Indication: POST-TRAUMATIC STRESS DISORDER
  3. ZOLOFT [Suspect]
     Indication: SOCIAL PHOBIA
  4. ZOLOFT [Suspect]
     Indication: PARANOIA
  5. SOLIAN [Suspect]
     Dosage: DAILY DOSE:400MG
     Route: 048
     Dates: start: 20050701, end: 20070121
  6. AVANZA [Concomitant]
  7. XANAX [Concomitant]

REACTIONS (2)
  - BRUXISM [None]
  - TARDIVE DYSKINESIA [None]
